FAERS Safety Report 24647451 (Version 1)
Quarter: 2024Q4

REPORT INFORMATION
  Report Type: Spontaneous
  Country: BR (occurrence: BR)
  Receive Date: 20241121
  Receipt Date: 20241121
  Transmission Date: 20250115
  Serious: Yes (Life-Threatening, Hospitalization, Other)
  Sender: TERSERA THERAPEUTICS
  Company Number: BR-AstraZeneca-CH-00743498A

PATIENT

DRUGS (3)
  1. GOSERELIN [Suspect]
     Active Substance: GOSERELIN
     Indication: Endometriosis
     Dosage: UNK
     Route: 065
  2. ZOLADEX [Suspect]
     Active Substance: GOSERELIN ACETATE
     Indication: Endometriosis
     Dosage: UNK
     Route: 065
  3. BENRALIZUMAB [Suspect]
     Active Substance: BENRALIZUMAB
     Indication: Asthma
     Dosage: 30 MILLIGRAM, Q8W
     Route: 058
     Dates: start: 202109, end: 20241029

REACTIONS (25)
  - Hypothyroidism [Unknown]
  - Diabetes mellitus [Unknown]
  - Asthmatic crisis [Not Recovered/Not Resolved]
  - Thrombosis [Unknown]
  - Syncope [Unknown]
  - Eye infection [Unknown]
  - Cholelithiasis [Recovered/Resolved]
  - Asthma [Unknown]
  - Sleep disorder [Recovered/Resolved]
  - Wheezing [Not Recovered/Not Resolved]
  - Phlebitis [Not Recovered/Not Resolved]
  - Fibromyalgia [Not Recovered/Not Resolved]
  - Musculoskeletal chest pain [Unknown]
  - Osteoarthritis [Unknown]
  - Pain in extremity [Recovered/Resolved]
  - Chronic obstructive pulmonary disease [Unknown]
  - Tachycardia [Unknown]
  - Fatigue [Not Recovered/Not Resolved]
  - Cough [Not Recovered/Not Resolved]
  - Joint swelling [Not Recovered/Not Resolved]
  - Dizziness [Unknown]
  - Headache [Recovered/Resolved]
  - Pain [Not Recovered/Not Resolved]
  - Hypertension [Unknown]
  - Arthritis [Unknown]

NARRATIVE: CASE EVENT DATE: 20040101
